FAERS Safety Report 12854463 (Version 2)
Quarter: 2017Q1

REPORT INFORMATION
  Report Type: Spontaneous
  Country: JP (occurrence: JP)
  Receive Date: 20161017
  Receipt Date: 20170315
  Transmission Date: 20170428
  Serious: Yes (Other)
  Sender: FDA-Public Use
  Company Number: JP-ALKEM LABORATORIES LIMITED-JP-ALKEM-2016-00248

PATIENT
  Age: 44 Year
  Sex: Male
  Weight: 72 kg

DRUGS (5)
  1. LAMOTRIGINE. [Suspect]
     Active Substance: LAMOTRIGINE
     Indication: SUNCT SYNDROME
     Dosage: 50 MG, QD
  2. SUMATRIPTAN. [Concomitant]
     Active Substance: SUMATRIPTAN
     Indication: PRODUCT USED FOR UNKNOWN INDICATION
     Dosage: UNKNOWN
     Route: 058
  3. LIDOCAINE. [Concomitant]
     Active Substance: LIDOCAINE
     Indication: SUNCT SYNDROME
     Dosage: 2 MG/MIN (1.58 MG/KG/HR)
     Route: 041
  4. LAMOTRIGINE. [Suspect]
     Active Substance: LAMOTRIGINE
     Dosage: 200 MG, QD
  5. INDOMETACIN [Concomitant]
     Active Substance: INDOMETHACIN
     Indication: PRODUCT USED FOR UNKNOWN INDICATION
     Dosage: 75 MG, QD

REACTIONS (2)
  - Liver disorder [Recovering/Resolving]
  - Stevens-Johnson syndrome [Recovering/Resolving]
